FAERS Safety Report 10561221 (Version 2)
Quarter: 2014Q4

REPORT INFORMATION
  Report Type: Spontaneous
  Country: US (occurrence: US)
  Receive Date: 20141103
  Receipt Date: 20141126
  Transmission Date: 20150529
  Serious: No
  Sender: FDA-Public Use
  Company Number: US-ROXANE LABORATORIES, INC.-2014-RO-01663RO

PATIENT
  Age: 71 Year
  Sex: Male

DRUGS (1)
  1. IRBESARTAN HCT [Suspect]
     Active Substance: HYDROCHLOROTHIAZIDE\IRBESARTAN
     Indication: HYPERTENSION
     Route: 048
     Dates: start: 2011

REACTIONS (2)
  - Product quality issue [Unknown]
  - Drug ineffective [Recovered/Resolved]
